FAERS Safety Report 19194202 (Version 1)
Quarter: 2021Q2

REPORT INFORMATION
  Report Type: Spontaneous
  Country: US (occurrence: US)
  Receive Date: 20210428
  Receipt Date: 20210428
  Transmission Date: 20210717
  Serious: Yes (Hospitalization)
  Sender: FDA-Public Use
  Company Number: None

PATIENT
  Sex: Female

DRUGS (6)
  1. GILENYA [Suspect]
     Active Substance: FINGOLIMOD HYDROCHLORIDE
     Indication: MULTIPLE SCLEROSIS
     Route: 048
     Dates: start: 20200622
  2. MODAFINIL TAB 100MG [Concomitant]
     Dates: start: 20200207
  3. GILENYA [Suspect]
     Active Substance: FINGOLIMOD HYDROCHLORIDE
     Indication: TYPE 2 DIABETES MELLITUS
     Route: 048
     Dates: start: 20200622
  4. MULTIPLE \FIT TAB [Concomitant]
     Dates: start: 20200207
  5. VITAMIN B?12 TAB 2000MCG [Concomitant]
     Dates: start: 20200207
  6. ZOLOFT TAB 50MG [Concomitant]
     Dates: start: 20200207

REACTIONS (1)
  - Condition aggravated [None]
